FAERS Safety Report 12783142 (Version 1)
Quarter: 2016Q3

REPORT INFORMATION
  Report Type: Spontaneous
  Country: US (occurrence: US)
  Receive Date: 20160927
  Receipt Date: 20160927
  Transmission Date: 20161109
  Serious: Yes (Life-Threatening, Hospitalization, Other)
  Sender: FDA-Public Use
  Company Number: US-BEH-ZLBIGIV/02/01/USA

PATIENT
  Age: 73 Year
  Sex: Female
  Weight: 67 kg

DRUGS (1)
  1. ZLB IMMUNE GLOBULIN INTRAVENOUS (HUMAN) [Suspect]
     Active Substance: HUMAN IMMUNOGLOBULIN G
     Indication: HYPOGAMMAGLOBULINAEMIA
     Dosage: DAILY DOSE QUANTITY: 18, DAILY DOSE UNIT: G
     Route: 042
     Dates: start: 20020120, end: 20020120

REACTIONS (4)
  - Dyspnoea [Recovered/Resolved]
  - Asthenia [Unknown]
  - Hyperhidrosis [Recovered/Resolved]
  - Hypoxia [Unknown]

NARRATIVE: CASE EVENT DATE: 20020120
